FAERS Safety Report 5467975-3 (Version None)
Quarter: 2007Q3

REPORT INFORMATION
  Report Type: 
  Country: None (occurrence: None)
  Receive Date: 20070925
  Receipt Date: 20070925
  Transmission Date: 20080115
  Serious: Yes (Life-Threatening, Hospitalization)
  Sender: FDA-Public Use
  Company Number: None

PATIENT
  Age: 48 Year
  Sex: Female
  Weight: 62.1428 kg

DRUGS (1)
  1. YASMIN [Suspect]
     Indication: OVARIAN CYST
     Dosage: 1 TABLET DAILY
     Dates: start: 20061001, end: 20070601

REACTIONS (4)
  - BLOOD PRESSURE INCREASED [None]
  - HEART RATE INCREASED [None]
  - NERVOUSNESS [None]
  - PULMONARY EMBOLISM [None]
